FAERS Safety Report 21226466 (Version 1)
Quarter: 2022Q3

REPORT INFORMATION
  Report Type: Spontaneous
  Country: US (occurrence: US)
  Receive Date: 20220818
  Receipt Date: 20220818
  Transmission Date: 20221026
  Serious: No
  Sender: FDA-Public Use
  Company Number: US-CIPLA LTD.-2021US05469

PATIENT
  Sex: Female

DRUGS (5)
  1. DICLOFENAC [Suspect]
     Active Substance: DICLOFENAC
     Indication: Arthritis
     Dosage: UNK
     Route: 061
     Dates: start: 202005
  2. DICLOFENAC [Suspect]
     Active Substance: DICLOFENAC
     Dosage: UNK, APPLIED THE GEL AT BED TIME
     Route: 061
     Dates: start: 20210730
  3. CELECOXIB [Concomitant]
     Active Substance: CELECOXIB
     Indication: Arthritis
     Dosage: 200 MILLIGRAM, QD, SINCE YEARS
     Route: 065
     Dates: start: 202105
  4. CALCIUM [Concomitant]
     Active Substance: CALCIUM
     Indication: Supplementation therapy
     Dosage: UNK, QD, SINCE YEARS
     Route: 065
  5. ESTRADIOL [Concomitant]
     Active Substance: ESTRADIOL
     Indication: Supplementation therapy
     Dosage: UNK, QD, SINCE YEARS
     Route: 065

REACTIONS (5)
  - Blister [Recovering/Resolving]
  - Body temperature abnormal [Recovering/Resolving]
  - Intentional product use issue [Unknown]
  - Treatment noncompliance [Unknown]
  - Rash erythematous [Recovering/Resolving]

NARRATIVE: CASE EVENT DATE: 20210701
